FAERS Safety Report 22375039 (Version 5)
Quarter: 2023Q4

REPORT INFORMATION
  Report Type: Spontaneous
  Country: US (occurrence: US)
  Receive Date: 20230527
  Receipt Date: 20231021
  Transmission Date: 20240109
  Serious: Yes (Other)
  Sender: FDA-Public Use
  Company Number: US-UNITED THERAPEUTICS-UNT-2023-013733

PATIENT
  Sex: Female
  Weight: 58.503 kg

DRUGS (9)
  1. REMODULIN [Suspect]
     Active Substance: TREPROSTINIL
     Indication: Pulmonary arterial hypertension
     Dosage: 0.080 ?G/KG (SELF FILL CASSETTE WITH 3 ML; RATE OF 36 MCL PER HOUR), CONTINUING
     Route: 058
     Dates: start: 2023
  2. REMODULIN [Suspect]
     Active Substance: TREPROSTINIL
     Dosage: UNK, CONTINUING
     Route: 058
     Dates: start: 20230210
  3. REMODULIN [Suspect]
     Active Substance: TREPROSTINIL
     Indication: Pulmonary arterial hypertension
     Dosage: 0.080 ?G/KG (PHARMACY-FILLED WITH 3ML PER CASSETTE, AT A RATE OF 36 MCL/HOUR), CONTINUING
     Route: 058
     Dates: start: 202306
  4. REMODULIN [Suspect]
     Active Substance: TREPROSTINIL
     Dosage: UNK, CONTINUING
     Route: 058
     Dates: start: 202306
  5. REMODULIN [Suspect]
     Active Substance: TREPROSTINIL
     Dosage: UNK, CONTINUING
     Route: 058
     Dates: start: 20230601
  6. ZYRTEC [Suspect]
     Active Substance: CETIRIZINE HYDROCHLORIDE
     Indication: Seasonal allergy
     Dosage: UNK
     Route: 065
  7. TYLENOL [Suspect]
     Active Substance: ACETAMINOPHEN
     Indication: Headache
     Dosage: UNK
     Route: 065
  8. TYLENOL [Suspect]
     Active Substance: ACETAMINOPHEN
     Indication: Infusion site pain
  9. TADALAFIL [Concomitant]
     Active Substance: TADALAFIL
     Indication: Product used for unknown indication
     Dosage: UNK
     Route: 065

REACTIONS (15)
  - Dyspnoea [Unknown]
  - N-terminal prohormone brain natriuretic peptide increased [Unknown]
  - Supraventricular tachycardia [Unknown]
  - Seasonal allergy [Unknown]
  - Mucosal dryness [Unknown]
  - Epistaxis [Recovered/Resolved]
  - Device use error [Unknown]
  - Asthenia [Unknown]
  - Infusion site pain [Recovered/Resolved]
  - Abdominal pain upper [Recovered/Resolved]
  - Therapy non-responder [Unknown]
  - Allergy to plants [Unknown]
  - Headache [Unknown]
  - Oxygen saturation decreased [Unknown]
  - Right atrial pressure increased [Unknown]

NARRATIVE: CASE EVENT DATE: 20230101
